FAERS Safety Report 23796832 (Version 1)
Quarter: 2024Q2

REPORT INFORMATION
  Report Type: Spontaneous
  Country: US (occurrence: US)
  Receive Date: 20240430
  Receipt Date: 20240430
  Transmission Date: 20240716
  Serious: Yes (Disabling, Other)
  Sender: FDA-Public Use
  Company Number: US-VALIDUS PHARMACEUTICALS LLC-US-VDP-2024-019221

PATIENT

DRUGS (7)
  1. LASIX [Suspect]
     Active Substance: FUROSEMIDE
     Indication: Peripheral swelling
     Dosage: UNK
     Route: 065
  2. LOSARTAN POTASSIUM [Suspect]
     Active Substance: LOSARTAN POTASSIUM
     Indication: Blood pressure management
     Dosage: 50 MG
     Route: 065
     Dates: start: 2023
  3. LOSARTAN POTASSIUM AND HYDROCHLOROTHIAZIDE [Suspect]
     Active Substance: HYDROCHLOROTHIAZIDE\LOSARTAN POTASSIUM
     Indication: Blood pressure management
     Dosage: 50MG/12.5MG DOSE
     Route: 065
     Dates: start: 202402
  4. LOSARTAN [Suspect]
     Active Substance: LOSARTAN
     Indication: Blood pressure management
     Dosage: 50 MG
     Route: 065
     Dates: start: 2023
  5. POTASSIUM [Suspect]
     Active Substance: POTASSIUM
     Indication: Product used for unknown indication
     Dosage: UNK
     Route: 065
  6. ALEVE [Suspect]
     Active Substance: NAPROXEN SODIUM
     Indication: Pain
     Dosage: UNK
     Route: 065
  7. ALEVE [Suspect]
     Active Substance: NAPROXEN SODIUM
     Indication: Inflammation
     Dosage: UNK UNK, Q12H
     Route: 065

REACTIONS (21)
  - Disability [Not Recovered/Not Resolved]
  - Neuropathy peripheral [Recovering/Resolving]
  - Haematuria [Unknown]
  - Proteinuria [Unknown]
  - Renal disorder [Unknown]
  - Pain [Recovering/Resolving]
  - Arthralgia [Recovering/Resolving]
  - Fluid retention [Recovering/Resolving]
  - Hypoaesthesia [Recovering/Resolving]
  - Gait disturbance [Recovering/Resolving]
  - Weight decreased [Recovering/Resolving]
  - Limb discomfort [Recovering/Resolving]
  - Dysstasia [Recovering/Resolving]
  - Myalgia [Recovering/Resolving]
  - Swelling [Recovering/Resolving]
  - Burning sensation [Recovering/Resolving]
  - Inflammation [Recovering/Resolving]
  - Paraesthesia [Recovering/Resolving]
  - Hypertension [Recovering/Resolving]
  - Drug ineffective [Unknown]
  - Product quality issue [Unknown]

NARRATIVE: CASE EVENT DATE: 20230101
